FAERS Safety Report 8870023 (Version 2)
Quarter: 2013Q1

REPORT INFORMATION
  Report Type: Spontaneous
  Country: US (occurrence: US)
  Receive Date: 20121028
  Receipt Date: 20130110
  Transmission Date: 20140127
  Serious: No
  Sender: FDA-Public Use
  Company Number: US-009507513-1210USA011403

PATIENT
  Sex: Female

DRUGS (8)
  1. PEGINTRON [Suspect]
     Indication: HEPATITIS C
     Dosage: 120 MICROGRAM, QW
     Route: 058
     Dates: start: 20120510
  2. RIBASPHERE [Suspect]
     Dosage: 400 MG IN MORNING AND 600 MG IN EVENING
     Route: 048
  3. TELAPREVIR [Suspect]
     Dosage: 750 MG, 3 TIMES DAILY FOR 12 WEEKS
     Route: 048
     Dates: end: 201208
  4. CHOLECALCIFEROL [Concomitant]
     Dosage: 1000 UNITS DAILY
  5. VITAMINS (UNSPECIFIED) [Concomitant]
     Dosage: DAILY
  6. ZOLOFT [Concomitant]
     Dosage: 50 MG,DAILY
  7. LORAZEPAM [Concomitant]
     Dosage: 0.5 MG, DAILY
  8. METOPROLOL [Concomitant]
     Dosage: 100 MG,DAILY

REACTIONS (5)
  - Anaemia [Unknown]
  - Pigmentation disorder [Unknown]
  - Alopecia [Unknown]
  - Dry skin [Unknown]
  - Pruritus [Unknown]
